FAERS Safety Report 25680000 (Version 1)
Quarter: 2025Q3

REPORT INFORMATION
  Report Type: Spontaneous
  Country: US (occurrence: US)
  Receive Date: 20250814
  Receipt Date: 20250814
  Transmission Date: 20251020
  Serious: Yes (Other)
  Sender: AMGEN
  Company Number: US-AMGEN-USASP2025157300

PATIENT
  Age: 68 Year
  Sex: Male

DRUGS (11)
  1. RITUXIMAB [Suspect]
     Active Substance: RITUXIMAB
     Indication: Hairy cell leukaemia
     Route: 065
  2. RITUXIMAB [Suspect]
     Active Substance: RITUXIMAB
     Indication: BRAF V600E mutation positive
  3. GENETICALLY-MODIFIED AUTOLOGOUS T CELLS NOS [Suspect]
     Active Substance: GENETICALLY-MODIFIED AUTOLOGOUS T CELLS NOS
     Indication: Hairy cell leukaemia
     Route: 065
  4. GENETICALLY-MODIFIED AUTOLOGOUS T CELLS NOS [Suspect]
     Active Substance: GENETICALLY-MODIFIED AUTOLOGOUS T CELLS NOS
     Indication: BRAF V600E mutation positive
  5. VEMURAFENIB [Concomitant]
     Active Substance: VEMURAFENIB
     Indication: Hairy cell leukaemia
  6. VEMURAFENIB [Concomitant]
     Active Substance: VEMURAFENIB
     Indication: BRAF V600E mutation positive
  7. CLADRIBINE [Concomitant]
     Active Substance: CLADRIBINE
     Indication: Hairy cell leukaemia
  8. PENTOSTATIN [Concomitant]
     Active Substance: PENTOSTATIN
     Indication: Hairy cell leukaemia
  9. BINIMETINIB [Concomitant]
     Active Substance: BINIMETINIB
     Indication: Hairy cell leukaemia
  10. ENCORAFENIB [Concomitant]
     Active Substance: ENCORAFENIB
     Indication: Hairy cell leukaemia
  11. INTERFERON [Concomitant]
     Active Substance: INTERFERON
     Indication: Hairy cell leukaemia

REACTIONS (4)
  - Hairy cell leukaemia [Recovered/Resolved]
  - Hydroureter [Unknown]
  - Cytokine release syndrome [Unknown]
  - Drug effective for unapproved indication [Unknown]
